FAERS Safety Report 7692825-4 (Version None)
Quarter: 2011Q3

REPORT INFORMATION
  Report Type: 
  Country: None (occurrence: None)
  Receive Date: 20110819
  Receipt Date: 20110808
  Transmission Date: 20111222
  Serious: Yes (Disabling, Other)
  Sender: FDA-Public Use
  Company Number: US-ELI_LILLY_AND_COMPANY-US201108003291

PATIENT
  Age: 64 Year
  Sex: Female

DRUGS (7)
  1. HUMULIN R [Suspect]
     Dosage: 1.2 U, EVERY HOUR
     Route: 058
     Dates: start: 20040101
  2. HUMULIN R [Suspect]
     Dosage: 4 U, TID
     Route: 058
     Dates: start: 20040101
  3. HUMULIN R [Suspect]
     Dosage: 1.2 U, EVERY HOUR
     Dates: start: 20040101
  4. HUMULIN R [Suspect]
     Indication: DIABETES MELLITUS
     Dosage: 3.4 U, EVERY HOUR
     Route: 058
     Dates: start: 20040101
  5. HUMULIN R [Suspect]
     Dosage: 3.4 U, EVERY HOUR
     Route: 058
  6. HUMULIN R [Suspect]
     Dosage: 4 U, TID
     Dates: start: 20040101
  7. HUMULIN N [Suspect]
     Dosage: UNK, UNKNOWN
     Route: 058
     Dates: end: 20040101

REACTIONS (9)
  - MYALGIA [None]
  - MUSCLE DISORDER [None]
  - MUSCULOSKELETAL PAIN [None]
  - DRUG INEFFECTIVE [None]
  - GAIT DISTURBANCE [None]
  - MUSCLE SPASMS [None]
  - INSULIN RESISTANCE [None]
  - BLOOD GLUCOSE INCREASED [None]
  - PAIN IN EXTREMITY [None]
